FAERS Safety Report 17404980 (Version 1)
Quarter: 2020Q1

REPORT INFORMATION
  Report Type: Spontaneous
  Country: FR (occurrence: FR)
  Receive Date: 20200211
  Receipt Date: 20200211
  Transmission Date: 20200409
  Serious: Yes (Death)
  Sender: FDA-Public Use
  Company Number: FR-CANTON LABORATORIES, LLC-2080171

PATIENT
  Age: 77 Year
  Sex: Male

DRUGS (7)
  1. LEVOTHYROX [Suspect]
     Active Substance: LEVOTHYROXINE
     Route: 048
  2. HYDROXYCARBAMIDE [Suspect]
     Active Substance: HYDROXYUREA
     Route: 048
     Dates: end: 20190205
  3. NAPROSYN [Suspect]
     Active Substance: NAPROXEN
     Indication: CARPAL TUNNEL SYNDROME
     Route: 048
     Dates: start: 2018, end: 201902
  4. URAPIDIL [Suspect]
     Active Substance: URAPIDIL
     Route: 048
     Dates: end: 201902
  5. PREVISCAN (FLUINDIONE) [Suspect]
     Active Substance: FLUINDIONE
     Route: 048
     Dates: end: 20190205
  6. SOTALOL. [Suspect]
     Active Substance: SOTALOL
     Route: 048
     Dates: end: 20190206
  7. TELMISARTAN. [Suspect]
     Active Substance: TELMISARTAN
     Route: 048
     Dates: end: 20190206

REACTIONS (2)
  - Rectal haemorrhage [Fatal]
  - Shock haemorrhagic [Fatal]

NARRATIVE: CASE EVENT DATE: 20190205
